FAERS Safety Report 22371823 (Version 9)
Quarter: 2023Q4

REPORT INFORMATION
  Report Type: Report from Study
  Country: CO (occurrence: CO)
  Receive Date: 20230526
  Receipt Date: 20231111
  Transmission Date: 20240109
  Serious: Yes (Hospitalization)
  Sender: FDA-Public Use
  Company Number: CO-TAKEDA-2022TUS028011

PATIENT
  Age: 10 Year
  Sex: Female
  Weight: 23 kg

DRUGS (2)
  1. HUMAN IMMUNOGLOBULIN G\HYALURONIDASE RECOMBINANT HUMAN [Suspect]
     Active Substance: HUMAN IMMUNOGLOBULIN G\HYALURONIDASE (HUMAN RECOMBINANT)
     Indication: Primary immunodeficiency syndrome
     Dosage: 10 GRAM, MONTHLY
     Route: 058
     Dates: start: 20220420
  2. HUMAN IMMUNOGLOBULIN G\HYALURONIDASE RECOMBINANT HUMAN [Suspect]
     Active Substance: HUMAN IMMUNOGLOBULIN G\HYALURONIDASE (HUMAN RECOMBINANT)
     Dosage: 15 GRAM, Q3WEEKS
     Route: 058
     Dates: end: 20230818

REACTIONS (12)
  - Respiratory tract infection viral [Recovered/Resolved]
  - Abdominal pain [Recovering/Resolving]
  - Weight decreased [Unknown]
  - Illness [Unknown]
  - Insurance issue [Unknown]
  - Treatment noncompliance [Unknown]
  - Asthenia [Unknown]
  - Pruritus genital [Recovering/Resolving]
  - Genital haemorrhage [Recovering/Resolving]
  - Pelvic pain [Recovering/Resolving]
  - Product dose omission issue [Unknown]
  - Inappropriate schedule of product administration [Unknown]

NARRATIVE: CASE EVENT DATE: 20230421
